FAERS Safety Report 6283546-3 (Version None)
Quarter: 2009Q3

REPORT INFORMATION
  Report Type: 
  Country: None (occurrence: None)
  Receive Date: 20090722
  Receipt Date: 20090722
  Transmission Date: 20100115
  Serious: No
  Sender: FDA-Public Use
  Company Number: None

PATIENT
  Sex: Female

DRUGS (1)
  1. HUMIRA [Suspect]
     Indication: PSORIASIS
     Dosage: 40 MG PEN Q OTHER WEEK SC
     Route: 058
     Dates: start: 20080501, end: 20080801

REACTIONS (3)
  - CHILLS [None]
  - NIGHT SWEATS [None]
  - PYREXIA [None]
